FAERS Safety Report 4908176-4 (Version None)
Quarter: 2006Q1

REPORT INFORMATION
  Report Type: 
  Country: None (occurrence: None)
  Receive Date: 20060210
  Receipt Date: 20060131
  Transmission Date: 20060701
  Serious: Yes (Hospitalization)
  Sender: FDA-Public Use
  Company Number: JP-JNJFOC-20060201008

PATIENT
  Age: 47 Year
  Sex: Male
  Weight: 66 kg

DRUGS (3)
  1. CRAVIT [Suspect]
     Route: 048
     Dates: start: 20051214, end: 20051214
  2. KAKKON-TO [Concomitant]
     Route: 048
     Dates: start: 20051214
  3. DASEN [Concomitant]
     Route: 048
     Dates: start: 20051214

REACTIONS (3)
  - ABNORMAL BEHAVIOUR [None]
  - DEPRESSED LEVEL OF CONSCIOUSNESS [None]
  - VERTIGO [None]
